FAERS Safety Report 10189334 (Version 2)
Quarter: 2014Q2

REPORT INFORMATION
  Report Type: Spontaneous
  Country: US (occurrence: US)
  Receive Date: 20140522
  Receipt Date: 20140522
  Transmission Date: 20141212
  Serious: No
  Sender: FDA-Public Use
  Company Number: US-ASTRAZENECA-2013SE48143

PATIENT
  Age: 77 Year
  Sex: Female
  Weight: 44 kg

DRUGS (6)
  1. PULMICORT FLEXHALER [Suspect]
     Indication: DYSPNOEA
     Dosage: 180 MCG 1-2 PUFFS AT NIGHT
     Route: 055
     Dates: start: 2005, end: 201301
  2. PULMICORT FLEXHALER [Suspect]
     Indication: DYSPNOEA
     Dosage: 180 MCG 1-2 PUFFS AT NIGHT
     Route: 055
     Dates: start: 201305
  3. PREVERA [Concomitant]
     Indication: HOT FLUSH
  4. ESTRACE [Concomitant]
     Indication: HOT FLUSH
  5. MAGNESIUM [Concomitant]
  6. POTASSIUM [Concomitant]

REACTIONS (4)
  - Dyspnoea [Unknown]
  - Weight decreased [Unknown]
  - Cystitis interstitial [Unknown]
  - Panic attack [Unknown]
